FAERS Safety Report 25298314 (Version 1)
Quarter: 2025Q2

REPORT INFORMATION
  Report Type: Spontaneous
  Country: ES (occurrence: ES)
  Receive Date: 20250512
  Receipt Date: 20250512
  Transmission Date: 20250717
  Serious: Yes (Hospitalization, Other)
  Sender: AUROBINDO
  Company Number: ES-AEMPS-1664864

PATIENT
  Age: 77 Year
  Sex: Female

DRUGS (2)
  1. SERTRALINE [Suspect]
     Active Substance: SERTRALINE HYDROCHLORIDE
     Indication: Anxiety
     Dosage: 50 MILLIGRAM, ONCE A DAY [1-0-0]
     Route: 048
     Dates: start: 20250228, end: 20250416
  2. HERBALS\MINERALS [Suspect]
     Active Substance: HERBALS\MINERALS
     Indication: Gastrooesophageal reflux disease
     Dosage: 15 MILLIGRAM, 3 TIMES A DAY [1-1-1]
     Route: 048
     Dates: start: 20250201, end: 20250416

REACTIONS (1)
  - Hepatitis cholestatic [Recovering/Resolving]

NARRATIVE: CASE EVENT DATE: 20250326
